FAERS Safety Report 6791229-6 (Version None)
Quarter: 2010Q2

REPORT INFORMATION
  Report Type: 
  Country: None (occurrence: None)
  Receive Date: 20100624
  Receipt Date: 20090920
  Transmission Date: 20101027
  Serious: No
  Sender: FDA-Public Use
  Company Number: US-BAUSCH-2009BL004784

PATIENT
  Age: 27 Year
  Sex: Female

DRUGS (2)
  1. GENTAMICIN SULFATE [Suspect]
     Indication: BLEPHARITIS
     Route: 047
     Dates: start: 20090906, end: 20090912
  2. GENTAMICIN SULFATE [Suspect]
     Indication: EYE INFECTION
     Route: 047
     Dates: start: 20090906, end: 20090912

REACTIONS (2)
  - INTENTIONAL DRUG MISUSE [None]
  - VISION BLURRED [None]
